FAERS Safety Report 8525847 (Version 4)
Quarter: 2014Q3

REPORT INFORMATION
  Report Type: Spontaneous
  Country: GB (occurrence: GB)
  Receive Date: 20120423
  Receipt Date: 20140729
  Transmission Date: 20150326
  Serious: Yes (Hospitalization, Other)
  Sender: FDA-Public Use
  Company Number: GB-RANBAXY-2012RR-55566

PATIENT
  Age: 63 Year
  Sex: Male

DRUGS (11)
  1. LANSOPRAZOLE. [Suspect]
     Active Substance: LANSOPRAZOLE
     Indication: BARRETT^S OESOPHAGUS
     Dosage: 30 MG
     Route: 065
  2. AMLODIPINE [Concomitant]
     Active Substance: AMLODIPINE BESYLATE
     Indication: HYPERTENSION
     Dosage: UNK
     Route: 065
  3. SIMVASTATIN. [Concomitant]
     Active Substance: SIMVASTATIN
     Indication: PROPHYLAXIS
     Dosage: UNK
     Route: 065
  4. RANITIDINE [Suspect]
     Active Substance: RANITIDINE\RANITIDINE HYDROCHLORIDE
     Indication: OESOPHAGITIS
     Dosage: UNK
     Route: 065
  5. LANSOPRAZOLE. [Suspect]
     Active Substance: LANSOPRAZOLE
     Indication: BARRETT^S OESOPHAGUS
     Dosage: 15 MG/DAY
     Route: 065
  6. OMEPRAZOLE. [Suspect]
     Active Substance: OMEPRAZOLE
     Indication: OESOPHAGITIS
     Dosage: 20 MG TWICE DAILY
     Route: 065
  7. RANITIDINE [Suspect]
     Active Substance: RANITIDINE\RANITIDINE HYDROCHLORIDE
     Indication: DUODENITIS
  8. LANSOPRAZOLE. [Suspect]
     Active Substance: LANSOPRAZOLE
     Indication: BARRETT^S OESOPHAGUS
     Dosage: 30 MG
     Route: 065
  9. OMEPRAZOLE. [Suspect]
     Active Substance: OMEPRAZOLE
     Indication: DUODENITIS
  10. OMEPRAZOLE. [Suspect]
     Active Substance: OMEPRAZOLE
     Indication: OESOPHAGITIS
     Dosage: 20 MG TWICE DAILY
     Route: 065
  11. OMEPRAZOLE. [Suspect]
     Active Substance: OMEPRAZOLE
     Indication: DUODENITIS

REACTIONS (3)
  - Convulsion [Unknown]
  - Hypomagnesaemia [Unknown]
  - Lethargy [Unknown]
